FAERS Safety Report 18393693 (Version 2)
Quarter: 2022Q1

REPORT INFORMATION
  Report Type: Spontaneous
  Country: US (occurrence: US)
  Receive Date: 20201016
  Receipt Date: 20220209
  Transmission Date: 20220423
  Serious: No
  Sender: FDA-Public Use
  Company Number: US-PFIZER INC-2020212909

PATIENT
  Age: 71 Year
  Sex: Female

DRUGS (1)
  1. VFEND [Suspect]
     Active Substance: VORICONAZOLE
     Dosage: 1.5 DF, 2X/DAY (TAKE 1.5 TABLETS ORALLY 2 TIMES A DAY)
     Route: 048

REACTIONS (1)
  - Arthritis [Unknown]
